FAERS Safety Report 10790858 (Version 1)
Quarter: 2015Q1

REPORT INFORMATION
  Report Type: Report from Study
  Country: BR (occurrence: BR)
  Receive Date: 20150212
  Receipt Date: 20150212
  Transmission Date: 20150721
  Serious: Yes (Death, Hospitalization)
  Sender: FDA-Public Use
  Company Number: PHHY2015BR017007

PATIENT
  Sex: Female
  Weight: 50 kg

DRUGS (1)
  1. DIOVAN AMLO FIX [Suspect]
     Active Substance: AMLODIPINE\VALSARTAN
     Indication: HYPERTENSION
     Dosage: 1 DF (160/5 MG), QD AT NIGHT
     Route: 065

REACTIONS (5)
  - Abdominal pain [Unknown]
  - Gastrointestinal cancer metastatic [Fatal]
  - Metastases to lung [Fatal]
  - Hypotension [Unknown]
  - Underweight [Unknown]
